FAERS Safety Report 7335407-6 (Version None)
Quarter: 2011Q1

REPORT INFORMATION
  Report Type: 
  Country: None (occurrence: None)
  Receive Date: 20110307
  Receipt Date: 20110221
  Transmission Date: 20110831
  Serious: Yes (Hospitalization)
  Sender: FDA-Public Use
  Company Number: GXKR2011DK01004

PATIENT
  Sex: Female
  Weight: 49 kg

DRUGS (13)
  1. TOCILIZUMAB [Suspect]
     Dosage: 9.8MG/KG, TOTAL MONTHLY DOSE: 480 MG
     Route: 042
     Dates: start: 20100824
  2. DICLOFENAC [Concomitant]
     Dosage: NSAIDS, FREQUENCY: P.N.
     Route: 048
  3. CORTICOSTEROIDS [Concomitant]
     Dosage: FREQUENCY: DAILY
     Route: 048
  4. PREDNISOLONE [Suspect]
     Dosage: FREQUENCY: QD
     Route: 048
     Dates: start: 20100427
  5. PREDNISOLONE [Suspect]
     Indication: RHEUMATOID ARTHRITIS
     Dosage: 5 - 7.5 MG, DAILY
     Route: 048
     Dates: start: 20081001
  6. TOCILIZUMAB [Suspect]
     Dosage: 480 MG, QW4
     Route: 042
     Dates: start: 20101014
  7. ETANERCEPT [Concomitant]
     Dates: start: 20090810
  8. METHOTREXATE [Suspect]
     Dosage: 25 MG, QW
     Route: 048
     Dates: start: 20100924
  9. TOCILIZUMAB [Suspect]
     Dosage: 480 MG, QW4
     Route: 042
     Dates: start: 20100920
  10. TOCILIZUMAB [Suspect]
     Dosage: 480 MG, QW4
     Route: 042
     Dates: start: 20101115, end: 20101201
  11. METHOTREXATE [Suspect]
     Indication: RHEUMATOID ARTHRITIS
     Dosage: 25 MG, QW
     Route: 048
     Dates: start: 20080615
  12. HYDROXYCHLOROQUINE [Concomitant]
     Dates: start: 20080915
  13. SALAZOPYRIN [Concomitant]
     Dates: start: 20080331

REACTIONS (2)
  - ABDOMINAL ABSCESS [None]
  - MALAISE [None]
